FAERS Safety Report 18785832 (Version 2)
Quarter: 2021Q1

REPORT INFORMATION
  Report Type: Spontaneous
  Country: TR (occurrence: TR)
  Receive Date: 20210125
  Receipt Date: 20210208
  Transmission Date: 20210419
  Serious: Yes (Death)
  Sender: FDA-Public Use
  Company Number: TR-BAUSCH-BL-2021-002526

PATIENT
  Age: 9 Year
  Sex: Female

DRUGS (34)
  1. IVIG [Concomitant]
     Active Substance: HUMAN IMMUNOGLOBULIN G
     Indication: T-CELL TYPE ACUTE LEUKAEMIA
     Route: 042
  2. MEROPENEM. [Suspect]
     Active Substance: MEROPENEM
     Indication: COVID-19
     Route: 065
     Dates: start: 2020
  3. AMPHOTERICIN B. [Suspect]
     Active Substance: AMPHOTERICIN B
     Indication: COVID-19
     Route: 065
     Dates: start: 2020
  4. METHOTREXATE. [Concomitant]
     Active Substance: METHOTREXATE
     Indication: T-CELL TYPE ACUTE LEUKAEMIA
     Route: 037
  5. FAVIPIRAVIR [Suspect]
     Active Substance: FAVIPIRAVIR
     Indication: PRODUCT USE IN UNAPPROVED INDICATION
     Route: 065
     Dates: start: 2020
  6. TRIMETHOPRIM/SULFAMETHOXAZOLE [Suspect]
     Active Substance: SULFAMETHOXAZOLE\TRIMETHOPRIM
     Indication: PRODUCT USE IN UNAPPROVED INDICATION
  7. CYTOSINE ARABINOSIDE [Concomitant]
     Active Substance: CYTARABINE
     Indication: T-CELL TYPE ACUTE LEUKAEMIA
     Route: 065
  8. IVIG [Concomitant]
     Active Substance: HUMAN IMMUNOGLOBULIN G
     Dosage: P?ICU DAY 2
     Route: 042
  9. DEXAMETHASONE. [Concomitant]
     Active Substance: DEXAMETHASONE
     Indication: T-CELL TYPE ACUTE LEUKAEMIA
     Route: 065
  10. GANCICLOVIR. [Concomitant]
     Active Substance: GANCICLOVIR
     Indication: EVIDENCE BASED TREATMENT
     Dates: start: 2020, end: 2020
  11. SODIUM CHLORIDE. [Concomitant]
     Active Substance: SODIUM CHLORIDE
     Indication: PRODUCT USED FOR UNKNOWN INDICATION
     Route: 065
     Dates: start: 2020, end: 2020
  12. SODIUM CHLORIDE. [Concomitant]
     Active Substance: SODIUM CHLORIDE
     Indication: PRODUCT USE IN UNAPPROVED INDICATION
  13. GRANULOCYTE COLONY STIMULATING FACTOR [Suspect]
     Active Substance: GRANULOCYTE COLONY-STIMULATING FACTOR NOS
     Indication: COVID-19
     Dosage: DAY 1,2,3
     Route: 065
     Dates: start: 2020, end: 2020
  14. VANCOMYCIN [Suspect]
     Active Substance: VANCOMYCIN
     Indication: COVID-19
     Route: 065
     Dates: start: 2020
  15. VANCOMYCIN [Suspect]
     Active Substance: VANCOMYCIN
     Indication: PRODUCT USE IN UNAPPROVED INDICATION
  16. VINCRISTINE [Concomitant]
     Active Substance: VINCRISTINE
     Indication: T-CELL TYPE ACUTE LEUKAEMIA
     Route: 065
  17. GRANULOCYTE COLONY STIMULATING FACTOR [Suspect]
     Active Substance: GRANULOCYTE COLONY-STIMULATING FACTOR NOS
     Indication: PRODUCT USE IN UNAPPROVED INDICATION
  18. MEROPENEM. [Suspect]
     Active Substance: MEROPENEM
     Indication: PRODUCT USE IN UNAPPROVED INDICATION
  19. METHOTREXATE. [Concomitant]
     Active Substance: METHOTREXATE
     Route: 042
  20. L?ASPARAGINASE [Concomitant]
     Active Substance: ASPARAGINASE
     Indication: T-CELL TYPE ACUTE LEUKAEMIA
     Route: 065
  21. VITAMIN C [Concomitant]
     Active Substance: ASCORBIC ACID
     Indication: PRODUCT USE IN UNAPPROVED INDICATION
  22. FAVIPIRAVIR [Suspect]
     Active Substance: FAVIPIRAVIR
     Indication: COVID-19
     Route: 065
     Dates: start: 2020, end: 2020
  23. LEVETIRACETAM. [Suspect]
     Active Substance: LEVETIRACETAM
     Indication: PRODUCT USE IN UNAPPROVED INDICATION
  24. TRIMETHOPRIM/SULFAMETHOXAZOLE [Suspect]
     Active Substance: SULFAMETHOXAZOLE\TRIMETHOPRIM
     Indication: COVID-19
     Route: 065
     Dates: start: 2020
  25. AMPHOTERICIN B. [Suspect]
     Active Substance: AMPHOTERICIN B
     Indication: PRODUCT USE IN UNAPPROVED INDICATION
  26. CYCLOPHOSPHAMIDE. [Concomitant]
     Active Substance: CYCLOPHOSPHAMIDE
     Indication: T-CELL TYPE ACUTE LEUKAEMIA
     Route: 065
  27. HYDROCORTISONE. [Suspect]
     Active Substance: HYDROCORTISONE
     Indication: COVID-19
     Route: 065
     Dates: start: 2020
  28. HYDROCORTISONE. [Suspect]
     Active Substance: HYDROCORTISONE
     Indication: PRODUCT USE IN UNAPPROVED INDICATION
  29. TOCILIZUMAB. [Suspect]
     Active Substance: TOCILIZUMAB
     Indication: COVID-19
     Dosage: DAY 3,4
     Route: 065
     Dates: start: 2020, end: 2020
  30. TOCILIZUMAB. [Suspect]
     Active Substance: TOCILIZUMAB
     Indication: PRODUCT USE IN UNAPPROVED INDICATION
  31. LEVETIRACETAM. [Suspect]
     Active Substance: LEVETIRACETAM
     Indication: COVID-19
     Route: 065
     Dates: start: 2020
  32. ALBUMIN [Concomitant]
     Active Substance: ALBUMIN HUMAN
     Indication: PRODUCT USED FOR UNKNOWN INDICATION
     Route: 065
     Dates: start: 2020, end: 2020
  33. ALBUMIN [Concomitant]
     Active Substance: ALBUMIN HUMAN
     Indication: PRODUCT USE IN UNAPPROVED INDICATION
  34. VITAMIN C [Concomitant]
     Active Substance: ASCORBIC ACID
     Indication: SUPPLEMENTATION THERAPY
     Route: 065
     Dates: start: 2020

REACTIONS (1)
  - Product use in unapproved indication [Unknown]

NARRATIVE: CASE EVENT DATE: 2020
